FAERS Safety Report 8281384-3 (Version None)
Quarter: 2012Q2

REPORT INFORMATION
  Report Type: 
  Country: None (occurrence: None)
  Receive Date: 20120413
  Receipt Date: 20120329
  Transmission Date: 20120825
  Serious: Yes (Hospitalization)
  Sender: FDA-Public Use
  Company Number: FR-AMGEN-FRASP2012021778

PATIENT
  Age: 53 Year
  Sex: Male

DRUGS (2)
  1. INDOMETHACIN [Concomitant]
     Dosage: UNK
     Route: 048
  2. ENBREL [Suspect]
     Indication: ANKYLOSING SPONDYLITIS
     Dosage: 50 MG, WEEKLY
     Route: 058
     Dates: start: 20020201, end: 20080901

REACTIONS (3)
  - LYMPHADENOPATHY MEDIASTINAL [None]
  - WEIGHT DECREASED [None]
  - SARCOIDOSIS [None]
